FAERS Safety Report 5788326-0 (Version None)
Quarter: 2008Q2

REPORT INFORMATION
  Report Type: 
  Country: None (occurrence: None)
  Receive Date: 20080625
  Receipt Date: 20080614
  Transmission Date: 20081010
  Serious: Yes (Death, Hospitalization, Other)
  Sender: FDA-Public Use
  Company Number: US-PFIZER INC-2008042731

PATIENT
  Age: 61 Year
  Sex: Female

DRUGS (1)
  1. REVATIO [Suspect]
     Indication: PORTOPULMONARY HYPERTENSION
     Dates: start: 20070701, end: 20080505

REACTIONS (3)
  - DEATH [None]
  - MENTAL STATUS CHANGES [None]
  - STREPTOCOCCAL BACTERAEMIA [None]
